FAERS Safety Report 5263659-5 (Version None)
Quarter: 2007Q1

REPORT INFORMATION
  Report Type: 
  Country: None (occurrence: None)
  Receive Date: 20070312
  Receipt Date: 20070312
  Transmission Date: 20070707
  Serious: Yes (Hospitalization)
  Sender: FDA-Public Use
  Company Number: None

PATIENT
  Age: 24 Year
  Sex: Female

DRUGS (2)
  1. MIFEPREX [Suspect]
  2. MISOPROSTOL [Suspect]

REACTIONS (3)
  - ABORTION INCOMPLETE [None]
  - HAEMORRHAGE [None]
  - URINARY TRACT INFECTION [None]
